FAERS Safety Report 14019649 (Version 1)
Quarter: 2017Q3

REPORT INFORMATION
  Report Type: Spontaneous
  Country: FR (occurrence: FR)
  Receive Date: 20170928
  Receipt Date: 20170928
  Transmission Date: 20171128
  Serious: Yes (Other)
  Sender: FDA-Public Use
  Company Number: FR-MERCK KGAA-2028031

PATIENT
  Sex: Female

DRUGS (1)
  1. NOVOTHYROX [Suspect]
     Active Substance: LEVOTHYROXINE SODIUM
     Indication: PRODUCT USED FOR UNKNOWN INDICATION

REACTIONS (13)
  - Dry mouth [None]
  - Urine output increased [None]
  - Eye pain [None]
  - Diarrhoea [None]
  - Joint stiffness [None]
  - Dry skin [None]
  - Vertigo positional [Recovered/Resolved]
  - Malaise [None]
  - Depression [None]
  - Breast pain [None]
  - Psychomotor hyperactivity [None]
  - Anxiety [None]
  - Hot flush [None]
